FAERS Safety Report 9797738 (Version 2)
Quarter: 2014Q1

REPORT INFORMATION
  Report Type: Spontaneous
  Country: IT (occurrence: IT)
  Receive Date: 20140106
  Receipt Date: 20140206
  Transmission Date: 20141002
  Serious: Yes (Hospitalization)
  Sender: FDA-Public Use
  Company Number: IT-JNJFOC-20131217225

PATIENT
  Age: 35 Year
  Sex: Female
  Weight: 70 kg

DRUGS (4)
  1. HALDOL [Suspect]
     Indication: INTENTIONAL SELF-INJURY
     Route: 048
  2. HALDOL [Suspect]
     Indication: INTENTIONAL SELF-INJURY
     Dosage: 3 BOTTLES
     Route: 048
     Dates: start: 20131229, end: 20131229
  3. DEPAKIN CHRONO [Concomitant]
     Indication: MAJOR DEPRESSION
     Route: 048
     Dates: start: 20130101, end: 20131229
  4. EN [Concomitant]
     Indication: MAJOR DEPRESSION
     Route: 048
     Dates: start: 20130101, end: 20131229

REACTIONS (3)
  - Bradyphrenia [Recovering/Resolving]
  - Self injurious behaviour [Recovering/Resolving]
  - Intentional overdose [Recovering/Resolving]
